FAERS Safety Report 16927154 (Version 1)
Quarter: 2019Q4

REPORT INFORMATION
  Report Type: Spontaneous
  Country: CH (occurrence: CH)
  Receive Date: 20191016
  Receipt Date: 20191016
  Transmission Date: 20200122
  Serious: Yes (Hospitalization)
  Sender: FDA-Public Use
  Company Number: CH-ANIPHARMA-2019-CH-000037

PATIENT
  Age: 83 Year
  Sex: Female

DRUGS (4)
  1. PHENYTOIN ( PHENYTOIN) [Suspect]
     Active Substance: PHENYTOIN
     Dosage: 100 MG TID
     Route: 048
     Dates: start: 20190927, end: 20190927
  2. AMLODIPIN [Suspect]
     Active Substance: AMLODIPINE BESYLATE
     Dosage: 5 MG DAILY
     Route: 048
     Dates: start: 20190927, end: 20190927
  3. ATACAND [Suspect]
     Active Substance: CANDESARTAN CILEXETIL
     Indication: PRODUCT USED FOR UNKNOWN INDICATION
     Dosage: 16 MG UNK
     Route: 048
     Dates: start: 20190927, end: 20190927
  4. CALCIMAGON-D3 [Suspect]
     Active Substance: CALCIUM\CHOLECALCIFEROL
     Dosage: 500/800 ONCE A DAY
     Route: 048
     Dates: start: 20190927, end: 20190927

REACTIONS (5)
  - Intentional overdose [Recovered/Resolved]
  - Suicide attempt [Recovered/Resolved]
  - Vomiting [Recovered/Resolved]
  - Electrocardiogram QT prolonged [Recovered/Resolved]
  - Psychomotor retardation [Recovered/Resolved]

NARRATIVE: CASE EVENT DATE: 20190927
